FAERS Safety Report 10142583 (Version 2)
Quarter: 2014Q4

REPORT INFORMATION
  Report Type: Report from Study
  Country: US (occurrence: US)
  Receive Date: 20140430
  Receipt Date: 20141118
  Transmission Date: 20150528
  Serious: Yes (Hospitalization)
  Sender: FDA-Public Use
  Company Number: US-ROCHE-1388650

PATIENT
  Age: 51 Year
  Sex: Male

DRUGS (2)
  1. ALBUTEROL. [Concomitant]
     Active Substance: ALBUTEROL
  2. XOLAIR [Suspect]
     Active Substance: OMALIZUMAB
     Indication: ASTHMA
     Route: 058
     Dates: start: 2013

REACTIONS (15)
  - Chest discomfort [Recovered/Resolved]
  - Hyperventilation [Recovered/Resolved]
  - Asthma [Recovered/Resolved]
  - Agitation [Recovered/Resolved]
  - Restlessness [Recovered/Resolved]
  - Bronchitis [Recovered/Resolved]
  - Dyspnoea [Recovered/Resolved]
  - Middle insomnia [Recovered/Resolved]
  - Nail discolouration [Recovered/Resolved]
  - Cyanosis [Recovered/Resolved]
  - Wheezing [Recovered/Resolved]
  - Claustrophobia [Recovered/Resolved]
  - Cough [Recovered/Resolved]
  - Mood swings [Recovered/Resolved]
  - Chest pain [Recovered/Resolved]

NARRATIVE: CASE EVENT DATE: 2013
